FAERS Safety Report 4542013-5 (Version None)
Quarter: 2004Q4

REPORT INFORMATION
  Report Type: 
  Country: None (occurrence: None)
  Receive Date: 20041230
  Receipt Date: 20041227
  Transmission Date: 20050328
  Serious: Yes (Disabling)
  Sender: FDA-Public Use
  Company Number: US-MERCK-0412USA02913

PATIENT
  Age: 60 Year
  Sex: Female

DRUGS (3)
  1. FOSAMAX [Suspect]
     Indication: OSTEOPOROSIS
     Route: 048
     Dates: start: 20041223, end: 20041223
  2. OXYCONTIN [Concomitant]
     Route: 065
  3. NEURONTIN [Concomitant]
     Route: 065

REACTIONS (1)
  - MIGRAINE [None]
